FAERS Safety Report 15622968 (Version 7)
Quarter: 2019Q1

REPORT INFORMATION
  Report Type: Report from Study
  Country: AU (occurrence: AU)
  Receive Date: 20181115
  Receipt Date: 20190221
  Transmission Date: 20190417
  Serious: Yes (Hospitalization)
  Sender: FDA-Public Use
  Company Number: AU-VERTEX PHARMACEUTICALS-2018-008295

PATIENT
  Age: 19 Year
  Sex: Female
  Weight: 59 kg

DRUGS (13)
  1. SODIUM CHLORIDE. [Concomitant]
     Active Substance: SODIUM CHLORIDE
     Indication: CYSTIC FIBROSIS LUNG
     Dosage: 600 MG, QD
     Route: 048
     Dates: start: 2004
  2. VITAMIN B COMPLEX [Concomitant]
     Active Substance: CYANOCOBALAMIN\DEXPANTHENOL\NIACINAMIDE\PYRIDOXINE HYDROCHLORIDE\RIBOFLAVIN 5^-PHOSPHATE SODIUM\THIAMINE HYDROCHLORIDE\VITAMIN B COMPLEX
     Indication: PANCREATIC FAILURE
     Dosage: 1 UT, QD
     Route: 048
     Dates: start: 201509
  3. VX-659 [Suspect]
     Active Substance: INVESTIGATIONAL PRODUCT
     Indication: CYSTIC FIBROSIS
     Dosage: TEZ 50 MG/ IVA 50 MG/ VX-659 120 MG/ IVA 150 MG
     Route: 048
     Dates: start: 20180817, end: 20181107
  4. MACROGOL + ELECTROLYTES SANDOZ [Concomitant]
     Indication: CYSTIC FIBROSIS LUNG
     Dosage: 25 MILLILITER, BID
     Route: 048
     Dates: start: 20181123
  5. VX-661/VX-770 [Suspect]
     Active Substance: IVACAFTOR\TEZACAFTOR
     Indication: CYSTIC FIBROSIS
     Dosage: TEZ 50 MG/ IVA 50 MG/ VX-659 120 MG/ IVA 150 MG
     Route: 048
     Dates: start: 20180817, end: 20181107
  6. DOSULEPIN HYDROCHLORIDE [Concomitant]
     Active Substance: DOTHIEPIN HYDROCHLORIDE
     Indication: ANXIETY
     Dosage: 25 MG, QD
     Route: 048
     Dates: start: 2015, end: 20181122
  7. IMPLANON [Concomitant]
     Active Substance: ETONOGESTREL
     Dosage: 68 MG/3 YRS
     Dates: start: 20181102
  8. IBUPROFEN. [Concomitant]
     Active Substance: IBUPROFEN
     Indication: PAIN
     Dosage: 400 MG, PRN
     Route: 048
     Dates: start: 20180604
  9. CREON [Concomitant]
     Active Substance: PANCRELIPASE AMYLASE\PANCRELIPASE LIPASE\PANCRELIPASE PROTEASE
     Indication: PANCREATIC FAILURE
     Dosage: 10000 UNITS, PRN
     Route: 048
     Dates: start: 2004
  10. PULMOZYME [Concomitant]
     Active Substance: DORNASE ALFA
     Indication: CYSTIC FIBROSIS LUNG
     Dosage: 2.5 MG/ML, QD
     Route: 055
     Dates: start: 2004
  11. LEXAPRO [Concomitant]
     Active Substance: ESCITALOPRAM OXALATE
     Indication: ANXIETY
     Dosage: 5 MG, MANE
     Route: 048
     Dates: start: 20181123
  12. VITAMIN D                          /00107901/ [Concomitant]
     Active Substance: ERGOCALCIFEROL
     Indication: PANCREATIC FAILURE
     Dosage: 1 UT, QD
     Route: 048
     Dates: start: 2010
  13. FERROGRADUMET [Concomitant]
     Active Substance: FERROUS SULFATE
     Dosage: 1 UT, QD
     Route: 048
     Dates: start: 201509

REACTIONS (4)
  - Vomiting [None]
  - Dizziness [None]
  - Nausea [None]
  - Intentional overdose [Recovered/Resolved]

NARRATIVE: CASE EVENT DATE: 20181107
